FAERS Safety Report 25786060 (Version 1)
Quarter: 2025Q3

REPORT INFORMATION
  Report Type: Spontaneous
  Country: US (occurrence: None)
  Receive Date: 20250910
  Receipt Date: 20250910
  Transmission Date: 20251021
  Serious: No
  Sender: INCYTE
  Company Number: US-INCYTE CORPORATION-2025IN009569

PATIENT
  Age: 85 Year

DRUGS (1)
  1. JAKAFI [Suspect]
     Active Substance: RUXOLITINIB
     Indication: Polycythaemia vera
     Dosage: 10 MILLIGRAM, BID (HE TAKES MEDICATION WHEN HE FIRST GETS UP AND AT 10-11 PM WITH FOOD SUCH AS CRACKERS)

REACTIONS (4)
  - Decreased activity [Unknown]
  - General physical health deterioration [Unknown]
  - Asthenia [Unknown]
  - Intervertebral disc disorder [Unknown]
